FAERS Safety Report 9859738 (Version 2)
Quarter: 2014Q1

REPORT INFORMATION
  Report Type: Spontaneous
  Country: US (occurrence: FR)
  Receive Date: 20140131
  Receipt Date: 20140131
  Transmission Date: 20141002
  Serious: Yes (Disabling, Congenital Anomaly)
  Sender: FDA-Public Use
  Company Number: US-009507513-1304USA003523

PATIENT
  Age: 33 Year
  Sex: Female
  Weight: 3.27 kg

DRUGS (5)
  1. SINGULAIR [Suspect]
     Dosage: 10 MG, ONCE A DAY
     Route: 064
     Dates: start: 20001031, end: 20010401
  2. THEOPHYLLINE [Suspect]
     Route: 064
  3. PROVENTIL [Suspect]
     Indication: ASTHMA
     Route: 064
  4. IPRATROPIUM BROMIDE WARRICK [Suspect]
     Route: 064
  5. BECLOMETHASONE DIPROPIONATE [Suspect]
     Indication: ASTHMA
     Route: 064

REACTIONS (6)
  - Limb reduction defect [Unknown]
  - Limb hypoplasia congenital [Unknown]
  - Congenital hand malformation [Unknown]
  - Deformity [Unknown]
  - Congenital musculoskeletal anomaly [Unknown]
  - Foetal exposure during pregnancy [Recovered/Resolved]
